FAERS Safety Report 4485089-6 (Version None)
Quarter: 2004Q4

REPORT INFORMATION
  Report Type: 
  Country: None (occurrence: None)
  Receive Date: 20041026
  Receipt Date: 20030813
  Transmission Date: 20050328
  Serious: Yes (Life-Threatening)
  Sender: FDA-Public Use
  Company Number: US-BRISTOL-MYERS SQUIBB COMPANY-12355731

PATIENT
  Age: 54 Year
  Sex: Female
  Weight: 129 kg

DRUGS (7)
  1. GLUCOPHAGE XR [Suspect]
     Indication: DIABETES MELLITUS
     Route: 048
     Dates: start: 20011212
  2. DIOVAN [Concomitant]
  3. HYDROCHLOROTHIAZIDE [Concomitant]
  4. VITAMIN C [Concomitant]
  5. K-LOR [Concomitant]
  6. PAXIL [Concomitant]
  7. BEXTRA [Concomitant]

REACTIONS (6)
  - ABDOMINAL DISCOMFORT [None]
  - DIARRHOEA [None]
  - GASTROINTESTINAL PAIN [None]
  - HYPERGLYCAEMIA [None]
  - MUSCLE CRAMP [None]
  - STOOL ANALYSIS ABNORMAL [None]
